FAERS Safety Report 8401563-1 (Version None)
Quarter: 2012Q2

REPORT INFORMATION
  Report Type: 
  Country: None (occurrence: None)
  Receive Date: 20120601
  Receipt Date: 20120529
  Transmission Date: 20120825
  Serious: Yes (Death, Other)
  Sender: FDA-Public Use
  Company Number: PHHY2012IT045880

PATIENT
  Age: 55 Year
  Sex: Female

DRUGS (2)
  1. PIPERACILLIN/TAZOBACTAM [Concomitant]
  2. VORICONAZOLE [Suspect]
     Indication: ANTIFUNGAL TREATMENT
     Dosage: 4 MG/KG, BID

REACTIONS (12)
  - DYSPNOEA [None]
  - LUNG NEOPLASM [None]
  - PLEURAL EFFUSION [None]
  - CHEST PAIN [None]
  - BACK PAIN [None]
  - THROMBOCYTOPENIA [None]
  - ZYGOMYCOSIS [None]
  - COUGH [None]
  - MUSCULOSKELETAL PAIN [None]
  - PNEUMOTHORAX [None]
  - GENERAL PHYSICAL HEALTH DETERIORATION [None]
  - HEPATIC FUNCTION ABNORMAL [None]
